FAERS Safety Report 6962063-9 (Version None)
Quarter: 2010Q3

REPORT INFORMATION
  Report Type: 
  Country: None (occurrence: None)
  Receive Date: 20100901
  Receipt Date: 20100901
  Transmission Date: 20110219
  Serious: No
  Sender: FDA-Public Use
  Company Number: None

PATIENT
  Age: 7 Month
  Sex: Male
  Weight: 9.0719 kg

DRUGS (1)
  1. INFANTS IBUPROFEN [Suspect]
     Indication: BODY TEMPERATURE INCREASED
     Dosage: 1.25 MG. 6-8 HRS
     Dates: start: 20100812

REACTIONS (5)
  - NAUSEA [None]
  - ORAL DISCOMFORT [None]
  - PRODUCT QUALITY ISSUE [None]
  - PRODUCT TASTE ABNORMAL [None]
  - THROAT IRRITATION [None]
